FAERS Safety Report 5621257-5 (Version None)
Quarter: 2008Q1

REPORT INFORMATION
  Report Type: 
  Country: None (occurrence: None)
  Receive Date: 20080114
  Receipt Date: 20070430
  Transmission Date: 20080703
  Serious: Yes (Other)
  Sender: FDA-Public Use
  Company Number: A03200702887

PATIENT
  Age: 77 Year
  Sex: Female
  Weight: 86.17 kg

DRUGS (3)
  1. PLAVIX [Suspect]
     Indication: CEREBROVASCULAR ACCIDENT
     Dosage: 75 MG QD - ORAL
     Route: 048
     Dates: start: 20050401
  2. PLAVIX [Suspect]
     Indication: TRANSIENT ISCHAEMIC ATTACK
     Dosage: 75 MG QD - ORAL
     Route: 048
     Dates: start: 20050401
  3. ATENOLOL [Concomitant]

REACTIONS (5)
  - ANGIOPATHY [None]
  - BACK PAIN [None]
  - EPISTAXIS [None]
  - HYPERTENSION [None]
  - PHOTOPSIA [None]
